FAERS Safety Report 10626183 (Version 1)
Quarter: 2014Q4

REPORT INFORMATION
  Report Type: Spontaneous
  Country: US (occurrence: None)
  Receive Date: 20141121
  Receipt Date: 20141121
  Transmission Date: 20150529
  Serious: No
  Sender: FDA-Public Use
  Company Number: 163-10004-14081632

PATIENT
  Age: 37 Year
  Sex: Female
  Weight: 57.61 kg

DRUGS (4)
  1. OTEZLA [Suspect]
     Active Substance: APREMILAST
     Indication: PSORIATIC ARTHROPATHY
     Dosage: 2 TYABS A DAY.(60MG).
     Route: 048
     Dates: start: 20140624, end: 20140805
  2. CYTOMEL(LIOTHYRONIE SODIUM) [Concomitant]
  3. SYNTROID(LEVOTHYROXINE SODIUM) [Concomitant]
  4. ZYRETEC(CETIRIZINE HYDROCHLORIDE) [Concomitant]

REACTIONS (3)
  - Nausea [None]
  - Diarrhoea [None]
  - Headache [None]

NARRATIVE: CASE EVENT DATE: 2014
